FAERS Safety Report 13361942 (Version 13)
Quarter: 2019Q1

REPORT INFORMATION
  Report Type: Spontaneous
  Country: GB (occurrence: GB)
  Receive Date: 20170323
  Receipt Date: 20190120
  Transmission Date: 20190417
  Serious: Yes (Life-Threatening, Hospitalization, Other)
  Sender: FDA-Public Use
  Company Number: GB-SUN PHARMACEUTICAL INDUSTRIES LTD-2017R1-136457

PATIENT
  Age: 70 Year
  Sex: Female

DRUGS (12)
  1. FENTANYL. [Suspect]
     Active Substance: FENTANYL
     Dosage: IN TOTAL
     Route: 062
     Dates: start: 201407
  2. MIRTAZAPINE. [Suspect]
     Active Substance: MIRTAZAPINE
     Dosage: UNK
     Route: 065
     Dates: start: 201407
  3. MIRTAZAPINE. [Suspect]
     Active Substance: MIRTAZAPINE
     Dosage: UNK
     Route: 048
     Dates: start: 20140101
  4. MIRTAZAPINE. [Suspect]
     Active Substance: MIRTAZAPINE
     Dosage: 90 MG ONCE: IN TOTAL
     Route: 048
     Dates: start: 201407
  5. TRAMADOL. [Concomitant]
     Active Substance: TRAMADOL
     Indication: PRODUCT USED FOR UNKNOWN INDICATION
     Dosage: THERAPEUTIC DOSES
     Route: 065
  6. OXYCODONE [Concomitant]
     Active Substance: OXYCODONE
     Indication: NAUSEA
     Dosage: 10 MG, BID
     Route: 065
  7. FENTANYL. [Suspect]
     Active Substance: FENTANYL
     Dosage: 100 ?G, DAILY
     Route: 062
  8. MIRTAZAPINE. [Suspect]
     Active Substance: MIRTAZAPINE
     Indication: SUICIDE ATTEMPT
     Dosage: 15 MG, DAILY
     Route: 065
     Dates: start: 201405
  9. FENTANYL. [Suspect]
     Active Substance: FENTANYL
     Indication: ANALGESIC THERAPY
     Dosage: 10 PIECE OF 100 MICROGRAM, ONCE: IN TOTAL
     Route: 062
     Dates: start: 20140701, end: 20140701
  10. FENTANYL. [Suspect]
     Active Substance: FENTANYL
     Indication: BACK PAIN
     Dosage: 14100 MCG, 1/HR
     Route: 062
     Dates: start: 201407, end: 201407
  11. FENTANYL. [Suspect]
     Active Substance: FENTANYL
     Dosage: UNK
     Route: 065
     Dates: start: 201012
  12. ORAMORPH [Concomitant]
     Active Substance: MORPHINE SULFATE
     Indication: PRODUCT USED FOR UNKNOWN INDICATION
     Dosage: UNK
     Route: 048
     Dates: start: 2009

REACTIONS (5)
  - Intentional product misuse [Unknown]
  - Suicide attempt [Unknown]
  - Intentional overdose [Recovered/Resolved]
  - Drug ineffective [Unknown]
  - Somnolence [Recovered/Resolved]

NARRATIVE: CASE EVENT DATE: 201407
